FAERS Safety Report 18765344 (Version 1)
Quarter: 2021Q1

REPORT INFORMATION
  Report Type: Spontaneous
  Country: US (occurrence: US)
  Receive Date: 20210120
  Receipt Date: 20210120
  Transmission Date: 20210419
  Serious: Yes (Death)
  Sender: FDA-Public Use
  Company Number: US-PERRIGO-21US000481

PATIENT
  Age: 61 Year
  Sex: Male

DRUGS (13)
  1. AMLODIPINE [Suspect]
     Active Substance: AMLODIPINE BESYLATE
     Indication: SUSPECTED SUICIDE
     Dosage: UNKNOWN, UNKNOWN
     Route: 065
  2. INSULIN LISPRO [Suspect]
     Active Substance: INSULIN LISPRO
     Indication: SUSPECTED SUICIDE
     Dosage: UNKNOWN, UNKNOWN
     Route: 065
  3. INSULIN GLARGINE [Suspect]
     Active Substance: INSULIN GLARGINE
     Indication: SUSPECTED SUICIDE
     Dosage: UNKNOWN, UNKNOWN
     Route: 065
  4. SALICYLATES NOS [Suspect]
     Active Substance: UNSPECIFIED INGREDIENT
     Indication: SUSPECTED SUICIDE
     Dosage: UNKNOWN, UNKNOWN
     Route: 065
  5. ROSUVASTATIN. [Suspect]
     Active Substance: ROSUVASTATIN
     Indication: SUSPECTED SUICIDE
     Dosage: UNKNOWN, UNKNOWN
     Route: 065
  6. ALLOPURINOL. [Suspect]
     Active Substance: ALLOPURINOL
     Indication: SUSPECTED SUICIDE
     Dosage: UNKNOWN, UNKNOWN
     Route: 065
  7. OMEPRAZOLE. [Suspect]
     Active Substance: OMEPRAZOLE
     Indication: SUSPECTED SUICIDE
     Dosage: UNKNOWN, UNKNOWN
     Route: 065
  8. DILTIAZEM. [Suspect]
     Active Substance: DILTIAZEM
     Indication: SUSPECTED SUICIDE
     Dosage: UNKNOWN, UNKNOWN
     Route: 065
  9. HYDRALAZINE [Suspect]
     Active Substance: HYDRALAZINE HYDROCHLORIDE
     Indication: SUSPECTED SUICIDE
     Dosage: UNKNOWN, UNKNOWN
     Route: 065
  10. LISINOPRIL. [Suspect]
     Active Substance: LISINOPRIL
     Indication: SUSPECTED SUICIDE
     Dosage: UNKNOWN, UNKNOWN
     Route: 065
  11. DULOXETINE. [Suspect]
     Active Substance: DULOXETINE
     Indication: SUSPECTED SUICIDE
     Dosage: UNKNOWN, UNKNOWN
     Route: 065
  12. CLONIDINE. [Suspect]
     Active Substance: CLONIDINE
     Indication: SUSPECTED SUICIDE
     Dosage: UNKNOWN, UNKNOWN
     Route: 065
  13. METFORMIN [Suspect]
     Active Substance: METFORMIN HYDROCHLORIDE
     Indication: SUSPECTED SUICIDE
     Dosage: UNKNOWN, UNKNOWN
     Route: 065

REACTIONS (1)
  - Exposure to toxic agent [Fatal]
